FAERS Safety Report 21053556 (Version 1)
Quarter: 2022Q3

REPORT INFORMATION
  Report Type: Spontaneous
  Country: US (occurrence: None)
  Receive Date: 20220707
  Receipt Date: 20220707
  Transmission Date: 20221027
  Serious: Yes (Death)
  Sender: FDA-Public Use
  Company Number: None

PATIENT
  Age: 57 Year
  Sex: Female

DRUGS (1)
  1. ZARXIO [Suspect]
     Active Substance: FILGRASTIM-SNDZ
     Indication: Ovarian cancer
     Dosage: FREQUENCY : DAILY;?
     Route: 058
     Dates: start: 202203, end: 202206

REACTIONS (1)
  - Death [None]

NARRATIVE: CASE EVENT DATE: 20220628
